FAERS Safety Report 5009999-6 (Version None)
Quarter: 2006Q2

REPORT INFORMATION
  Report Type: 
  Country: None (occurrence: None)
  Receive Date: 20060524
  Receipt Date: 20060518
  Transmission Date: 20061013
  Serious: Yes (Hospitalization, Other)
  Sender: FDA-Public Use
  Company Number: PHHO2006JP08224

PATIENT
  Age: 83 Year
  Sex: Female

DRUGS (4)
  1. DIOVAN [Suspect]
     Indication: HYPERTENSION
     Dosage: 80 MG, QD
     Route: 048
     Dates: start: 20030317, end: 20050526
  2. ATELEC [Suspect]
     Indication: HYPERTENSION
     Dosage: 10 MG, QD
     Route: 048
     Dates: start: 20040430, end: 20050526
  3. URSODEOXYCHOLIC ACID [Concomitant]
     Indication: HEPATIC CIRRHOSIS
     Dosage: 600 MG, UNK
     Route: 048
     Dates: start: 20040430, end: 20050526
  4. KETOPROFEN [Concomitant]
     Indication: ARTHRALGIA
     Dates: start: 20040604, end: 20050526

REACTIONS (6)
  - CONDITION AGGRAVATED [None]
  - DYSPNOEA [None]
  - HEPATIC CIRRHOSIS [None]
  - HEPATIC FUNCTION ABNORMAL [None]
  - PYREXIA [None]
  - THROMBOPHLEBITIS [None]
